FAERS Safety Report 9005321 (Version 2)
Quarter: 2013Q2

REPORT INFORMATION
  Report Type: Spontaneous
  Country: US (occurrence: US)
  Receive Date: 20130108
  Receipt Date: 20130408
  Transmission Date: 20140414
  Serious: No
  Sender: FDA-Public Use
  Company Number: US-GLAXOSMITHKLINE-A1001322A

PATIENT
  Age: 30 Year
  Sex: Female
  Weight: 59.1 kg

DRUGS (2)
  1. POTIGA [Suspect]
     Indication: PARTIAL SEIZURES
     Dosage: 50MG THREE TIMES PER DAY
     Route: 048
  2. TRILEPTAL [Concomitant]

REACTIONS (2)
  - Hallucination [Recovered/Resolved]
  - Dysphagia [Recovered/Resolved]
